FAERS Safety Report 6359249-3 (Version None)
Quarter: 2009Q3

REPORT INFORMATION
  Report Type: 
  Country: None (occurrence: None)
  Receive Date: 20090917
  Receipt Date: 20090910
  Transmission Date: 20100115
  Serious: Yes (Hospitalization, Other)
  Sender: FDA-Public Use
  Company Number: US-BAYER-200833559NA

PATIENT
  Age: 32 Year
  Sex: Female
  Weight: 53 kg

DRUGS (2)
  1. MIRENA [Suspect]
     Indication: CONTRACEPTION
     Dosage: 20 MCG/DAY CONTINUOUS
     Route: 015
     Dates: start: 20030819, end: 20090617
  2. DEPO PREVARA [Concomitant]
     Indication: CONTRACEPTION
     Route: 030

REACTIONS (7)
  - BREAST PAIN [None]
  - BREAST TENDERNESS [None]
  - CERVICAL DYSPLASIA [None]
  - COMPLICATION OF DEVICE REMOVAL [None]
  - HYSTERECTOMY [None]
  - IUD MIGRATION [None]
  - UTERINE CERVIX STENOSIS [None]
